FAERS Safety Report 10241806 (Version 1)
Quarter: 2014Q2

REPORT INFORMATION
  Report Type: Spontaneous
  Country: GB (occurrence: GB)
  Receive Date: 20140617
  Receipt Date: 20140617
  Transmission Date: 20141212
  Serious: Yes (Other)
  Sender: FDA-Public Use
  Company Number: GB-TEVA-487168ISR

PATIENT
  Age: 35 Year
  Sex: Male

DRUGS (1)
  1. NAPROXEN [Suspect]
     Indication: BACK INJURY
     Dosage: COMPLETED COURSE.

REACTIONS (3)
  - Appendicitis perforated [Unknown]
  - Tinnitus [Unknown]
  - Crohn^s disease [Unknown]
